FAERS Safety Report 5618610-2 (Version None)
Quarter: 2008Q1

REPORT INFORMATION
  Report Type: 
  Country: None (occurrence: None)
  Receive Date: 20080207
  Receipt Date: 20080130
  Transmission Date: 20080703
  Serious: Yes (Death, Hospitalization)
  Sender: FDA-Public Use
  Company Number: KR-ELI_LILLY_AND_COMPANY-KR200801002122

PATIENT
  Sex: Male
  Weight: 89 kg

DRUGS (10)
  1. PEMETREXED [Suspect]
     Indication: NON-SMALL CELL LUNG CANCER
     Dosage: 500 MG/M2, DAY 1 EVERY 3 WEEKS
     Route: 042
     Dates: start: 20071212
  2. FOLIC ACID [Concomitant]
     Indication: PROPHYLAXIS
     Dosage: 1 MG, DAILY (1/D)
     Route: 065
     Dates: start: 20071205
  3. VITAMIN B-12 [Concomitant]
     Indication: PROPHYLAXIS
     Dosage: 1 MG, DAILY (1/D)
     Route: 065
     Dates: start: 20071205
  4. DEXAMETHASONE TAB [Concomitant]
     Indication: PROPHYLAXIS
     Dosage: 8 MG, DAILY (1/D)
     Route: 065
     Dates: start: 20071211, end: 20071213
  5. MACPERAN [Concomitant]
     Indication: VOMITING
     Dosage: UNK, UNKNOWN
     Route: 065
     Dates: start: 20071212
  6. VALIUM [Concomitant]
     Indication: ANXIETY
     Dosage: UNK, UNKNOWN
     Route: 065
     Dates: start: 20071212
  7. BENPROPERINE [Concomitant]
     Indication: COUGH
     Dosage: UNK, UNKNOWN
     Route: 065
  8. OMEPRAZOLE [Concomitant]
     Indication: ULCER
     Dosage: UNK, UNKNOWN
     Route: 065
     Dates: start: 20071212
  9. XYZAL [Concomitant]
     Indication: ANTIALLERGIC THERAPY
     Dosage: UNK, UNKNOWN
     Route: 065
     Dates: start: 20071212
  10. NEURONTIN [Concomitant]
     Indication: NEUROPATHY PERIPHERAL
     Dosage: UNK, UNKNOWN
     Route: 065
     Dates: start: 20071212

REACTIONS (2)
  - DEATH [None]
  - PLEURAL EFFUSION [None]
